FAERS Safety Report 8208269-2 (Version None)
Quarter: 2012Q1

REPORT INFORMATION
  Report Type: 
  Country: None (occurrence: None)
  Receive Date: 20120314
  Receipt Date: 20120309
  Transmission Date: 20120608
  Serious: Yes (Death, Other)
  Sender: FDA-Public Use
  Company Number: PHEH2011US06689

PATIENT
  Sex: Male

DRUGS (4)
  1. GILENYA [Suspect]
     Dosage: 0.5 MG, QD
     Route: 048
     Dates: start: 20110526
  2. GILENYA [Suspect]
     Indication: MULTIPLE SCLEROSIS
     Dosage: 0.5 MG, QD
     Route: 048
     Dates: start: 20101111
  3. REMERON [Concomitant]
     Dosage: 15 MG, QHS
     Route: 048
     Dates: start: 20111005
  4. FLOMAX [Concomitant]
     Dosage: 0.4 MG, QD
     Route: 048
     Dates: end: 20110228

REACTIONS (22)
  - DECREASED APPETITE [None]
  - URINARY RETENTION [None]
  - SPEECH DISORDER [None]
  - DYSPHORIA [None]
  - SENSORY DISTURBANCE [None]
  - BLOOD BILIRUBIN INCREASED [None]
  - PARANOIA [None]
  - NEUROGENIC BLADDER [None]
  - INFLUENZA LIKE ILLNESS [None]
  - EMOTIONAL DISORDER [None]
  - BILIRUBIN CONJUGATED INCREASED [None]
  - COMPLETED SUICIDE [None]
  - SUICIDAL IDEATION [None]
  - MAJOR DEPRESSION [None]
  - HYPOREFLEXIA [None]
  - ABNORMAL BEHAVIOUR [None]
  - BLOOD BILIRUBIN UNCONJUGATED INCREASED [None]
  - HALLUCINATION [None]
  - INSOMNIA [None]
  - STRESS [None]
  - MOOD ALTERED [None]
  - WEIGHT DECREASED [None]
